FAERS Safety Report 15299493 (Version 1)
Quarter: 2018Q3

REPORT INFORMATION
  Report Type: Report from Study
  Country: None (occurrence: AU)
  Receive Date: 20180821
  Receipt Date: 20180821
  Transmission Date: 20181010
  Serious: Yes (Hospitalization, Other)
  Sender: FDA-Public Use
  Company Number: AU-ABBVIE-18K-008-2452289-00

PATIENT
  Age: 68 Year
  Sex: Female

DRUGS (1)
  1. HUMIRA [Suspect]
     Active Substance: ADALIMUMAB
     Indication: CROHN^S DISEASE
     Route: 058
     Dates: start: 2012, end: 2017

REACTIONS (5)
  - Drug effect decreased [Unknown]
  - Immunodeficiency [Unknown]
  - General physical health deterioration [Unknown]
  - Drug specific antibody present [Unknown]
  - Bacterial infection [Unknown]

NARRATIVE: CASE EVENT DATE: 201807
